FAERS Safety Report 9966753 (Version 2)
Quarter: 2014Q1

REPORT INFORMATION
  Report Type: Report from Study
  Country: US (occurrence: US)
  Receive Date: 20140305
  Receipt Date: 20140305
  Transmission Date: 20141002
  Serious: No
  Sender: FDA-Public Use
  Company Number: US-ABBVIE-13P-163-1075048-00

PATIENT
  Age: 60 Year
  Sex: Female

DRUGS (26)
  1. HUMIRA [Suspect]
     Indication: CROHN^S DISEASE
     Dates: start: 20130307, end: 20130307
  2. HUMIRA [Suspect]
     Dates: start: 20130321, end: 20130321
  3. HUMIRA [Suspect]
  4. SYNTHROID [Concomitant]
     Indication: THYROID DISORDER
     Route: 048
  5. LAMOTRIGINE [Concomitant]
     Indication: AFFECTIVE DISORDER
     Route: 048
  6. SEROQUEL [Concomitant]
     Indication: INSOMNIA
     Dosage: AT NIGHT
     Route: 048
  7. SEROQUEL [Concomitant]
     Dosage: AT NIGHT
     Route: 048
  8. WELLBUTRIN [Concomitant]
     Indication: DEPRESSION
     Route: 048
  9. ATORVASTATIN [Concomitant]
     Indication: BLOOD CHOLESTEROL INCREASED
     Route: 048
  10. METOPROLOL [Concomitant]
     Indication: MIGRAINE PROPHYLAXIS
     Dosage: 50MG
     Route: 048
  11. IMITREX [Concomitant]
     Indication: MIGRAINE
  12. COLACE [Concomitant]
     Indication: CROHN^S DISEASE
     Route: 048
  13. CYMBALTA [Concomitant]
     Indication: FIBROMYALGIA
     Route: 048
  14. CYMBALTA [Concomitant]
     Indication: DEPRESSION
  15. KLONOPIN [Concomitant]
     Indication: ANXIETY
     Dosage: 3MG DAILY AND 2 MG EVERY EVENING
     Route: 048
  16. KLONOPIN [Concomitant]
     Indication: INSOMNIA
  17. CALCIUM 600 + D [Concomitant]
     Indication: OSTEOPENIA
  18. DIAMOX [Concomitant]
     Indication: PRODUCT USED FOR UNKNOWN INDICATION
     Dosage: 1000MG DAILY
  19. GLUCOSAMINE [Concomitant]
     Indication: PRODUCT USED FOR UNKNOWN INDICATION
     Dosage: DAILY
  20. FLEXERIL [Concomitant]
     Indication: PAIN
     Route: 048
  21. NITROSTAT [Concomitant]
     Indication: OESOPHAGEAL SPASM
     Route: 060
  22. MORPHINE [Concomitant]
     Indication: PAIN
  23. PERCOCET [Concomitant]
     Indication: BREAKTHROUGH PAIN
  24. MIRALAX [Concomitant]
     Indication: PROPHYLAXIS
  25. PROTONIX [Concomitant]
  26. FLUNISOLIDE [Concomitant]
     Indication: PRODUCT USED FOR UNKNOWN INDICATION
     Route: 045

REACTIONS (25)
  - Fatigue [Not Recovered/Not Resolved]
  - Cough [Not Recovered/Not Resolved]
  - Throat irritation [Not Recovered/Not Resolved]
  - Vulvovaginal pruritus [Not Recovered/Not Resolved]
  - Headache [Not Recovered/Not Resolved]
  - Pain [Not Recovered/Not Resolved]
  - Injection site haemorrhage [Not Recovered/Not Resolved]
  - Headache [Not Recovered/Not Resolved]
  - Intervertebral disc protrusion [Not Recovered/Not Resolved]
  - Arthralgia [Not Recovered/Not Resolved]
  - Dysphagia [Not Recovered/Not Resolved]
  - Abdominal pain upper [Not Recovered/Not Resolved]
  - Vomiting [Not Recovered/Not Resolved]
  - Injection site pain [Not Recovered/Not Resolved]
  - Diarrhoea [Not Recovered/Not Resolved]
  - Weight increased [Not Recovered/Not Resolved]
  - Cataract [Not Recovered/Not Resolved]
  - Osteopenia [Not Recovered/Not Resolved]
  - Back pain [Not Recovered/Not Resolved]
  - Arthralgia [Not Recovered/Not Resolved]
  - Dry skin [Not Recovered/Not Resolved]
  - Dry skin [Not Recovered/Not Resolved]
  - Pruritus [Not Recovered/Not Resolved]
  - Pruritus [Not Recovered/Not Resolved]
  - Skin exfoliation [Not Recovered/Not Resolved]
